FAERS Safety Report 24000216 (Version 1)
Quarter: 2024Q2

REPORT INFORMATION
  Report Type: Spontaneous
  Country: US (occurrence: None)
  Receive Date: 20240621
  Receipt Date: 20240621
  Transmission Date: 20240716
  Serious: No
  Sender: FDA-Public Use
  Company Number: None

PATIENT
  Sex: Female
  Weight: 76.7 kg

DRUGS (3)
  1. CYCLOPHOSPHAMIDE [Suspect]
     Active Substance: CYCLOPHOSPHAMIDE
  2. DACTINOMYCIN [Concomitant]
     Active Substance: DACTINOMYCIN
  3. VINCRISTINE SULFATE [Concomitant]

REACTIONS (5)
  - Hypoaesthesia [None]
  - Hypoaesthesia [None]
  - Muscular weakness [None]
  - Fall [None]
  - Gait inability [None]

NARRATIVE: CASE EVENT DATE: 20240618
